FAERS Safety Report 5625746-9 (Version None)
Quarter: 2008Q1

REPORT INFORMATION
  Report Type: 
  Country: None (occurrence: None)
  Receive Date: 20080214
  Receipt Date: 20080205
  Transmission Date: 20080703
  Serious: Yes (Other)
  Sender: FDA-Public Use
  Company Number: ES-BRISTOL-MYERS SQUIBB COMPANY-14073860

PATIENT
  Age: 64 Year
  Sex: Male

DRUGS (4)
  1. AIRTAL [Suspect]
     Indication: ARTHRALGIA
     Route: 048
     Dates: start: 20060713
  2. CAPTOPRIL [Suspect]
     Route: 048
     Dates: start: 20060101
  3. NOVOLOG MIX 70/30 [Suspect]
     Indication: DIABETES MELLITUS
     Dosage: NOVOMIX 30 FLEXPEN 100 U/ML 5 PEN, 3 ML CARTRIDGE.
     Route: 058
     Dates: start: 20050218
  4. MUTAGRIP [Suspect]
     Indication: INFLUENZA IMMUNISATION
     Route: 030
     Dates: start: 20071113, end: 20071113

REACTIONS (1)
  - HYPOGLYCAEMIA [None]
